FAERS Safety Report 12369428 (Version 1)
Quarter: 2016Q2

REPORT INFORMATION
  Report Type: Spontaneous
  Country: US (occurrence: None)
  Receive Date: 20160513
  Receipt Date: 20160513
  Transmission Date: 20160815
  Serious: No
  Sender: FDA-Public Use
  Company Number: None

PATIENT
  Age: 68 Year

DRUGS (1)
  1. ENOXAPARIN 100MG [Suspect]
     Active Substance: ENOXAPARIN
     Indication: PULMONARY EMBOLISM
     Dosage: 2/23 0842 - 2/27 1300 95MG BID SUBD
     Route: 058

REACTIONS (2)
  - Gastrointestinal disorder [None]
  - Contusion [None]

NARRATIVE: CASE EVENT DATE: 20160226
